FAERS Safety Report 13129314 (Version 4)
Quarter: 2017Q1

REPORT INFORMATION
  Report Type: Report from Study
  Country: JP (occurrence: JP)
  Receive Date: 20170119
  Receipt Date: 20170207
  Transmission Date: 20170428
  Serious: Yes (Other)
  Sender: FDA-Public Use
  Company Number: JP-ROCHE-1881020

PATIENT
  Age: 71 Year
  Sex: Male

DRUGS (11)
  1. RANIBIZUMAB [Suspect]
     Active Substance: RANIBIZUMAB
     Dosage: 0.05 ML, UNK
     Route: 031
     Dates: start: 20151214
  2. RANIBIZUMAB [Suspect]
     Active Substance: RANIBIZUMAB
     Dosage: 0.05 ML, UNK
     Route: 031
     Dates: start: 20160120, end: 20160120
  3. ADONA (JAPAN) [Concomitant]
     Indication: RETINAL VEIN OCCLUSION
     Dosage: PRN
     Route: 048
     Dates: end: 20150525
  4. TRANSAMIN [Concomitant]
     Active Substance: TRANEXAMIC ACID
     Indication: RETINAL VEIN OCCLUSION
     Dosage: PRN
     Route: 048
     Dates: end: 20150525
  5. GATIFLO [Concomitant]
     Active Substance: GATIFLOXACIN
     Indication: ANTIBIOTIC PROPHYLAXIS
     Dosage: BEFORE LUCENTIS, AFTER LUCENTIS
     Route: 047
     Dates: start: 20150615
  6. GATIFLO [Concomitant]
     Active Substance: GATIFLOXACIN
     Dosage: BEFORE LUCENTIS, AFTER LUCENTIS
     Route: 047
     Dates: start: 20160120
  7. URIEF [Concomitant]
     Active Substance: SILODOSIN
     Indication: BENIGN PROSTATIC HYPERPLASIA
     Route: 048
  8. GATIFLO [Concomitant]
     Active Substance: GATIFLOXACIN
     Dosage: BEFORE LUCENTIS, AFTER LUCENTIS
     Route: 047
     Dates: start: 20151214
  9. RANIBIZUMAB [Suspect]
     Active Substance: RANIBIZUMAB
     Indication: RETINAL VEIN OCCLUSION
     Dosage: 0.05 ML, UNK
     Route: 031
     Dates: start: 20150615
  10. RANIBIZUMAB [Suspect]
     Active Substance: RANIBIZUMAB
     Indication: MACULAR OEDEMA
     Dosage: 0.05 ML, UNK
     Route: 031
     Dates: start: 20150831
  11. GATIFLO [Concomitant]
     Active Substance: GATIFLOXACIN
     Dosage: BEFORE LUCENTIS, AFTER LUCENTIS
     Route: 047
     Dates: start: 20150831

REACTIONS (3)
  - Disease progression [Unknown]
  - Age-related macular degeneration [Recovering/Resolving]
  - Choroidal neovascularisation [Not Recovered/Not Resolved]

NARRATIVE: CASE EVENT DATE: 20160411
